FAERS Safety Report 8622479-1 (Version None)
Quarter: 2012Q3

REPORT INFORMATION
  Report Type: 
  Country: None (occurrence: None)
  Receive Date: 20120827
  Receipt Date: 20120823
  Transmission Date: 20120928
  Serious: Yes (Other)
  Sender: FDA-Public Use
  Company Number: US-PFIZER INC-2012208419

PATIENT
  Age: 58 Year
  Sex: Female
  Weight: 67.1 kg

DRUGS (2)
  1. GEODON [Suspect]
     Indication: MOOD SWINGS
     Dosage: 160 MG, DAILY AT NIGHT
     Route: 048
  2. CIPROFLOXACIN HCL [Suspect]
     Indication: PNEUMONIA
     Dosage: UNK
     Dates: start: 20120601, end: 20120601

REACTIONS (4)
  - UPPER RESPIRATORY TRACT INFECTION [None]
  - COUGH [None]
  - PNEUMONIA [None]
  - DRUG INTOLERANCE [None]
